FAERS Safety Report 14849472 (Version 2)
Quarter: 2018Q3

REPORT INFORMATION
  Report Type: Report from Study
  Country: PL (occurrence: PL)
  Receive Date: 20180504
  Receipt Date: 20180716
  Transmission Date: 20181010
  Serious: Yes (Other)
  Sender: FDA-Public Use
  Company Number: PL-CHIESI USA INC.-PL-2018CHI000100

PATIENT

DRUGS (2)
  1. CUROSURF [Suspect]
     Active Substance: PORACTANT ALFA
     Indication: NEONATAL RESPIRATORY DISTRESS SYNDROME
     Dosage: 2.5 ML, SINGLE
     Route: 039
     Dates: start: 20180323, end: 20180323
  2. PEYONA [Concomitant]
     Indication: NEONATAL RESPIRATORY DISTRESS SYNDROME
     Dosage: 30 MG, QD
     Dates: start: 20180323, end: 20180329

REACTIONS (1)
  - Neonatal hypoxia [Recovered/Resolved]

NARRATIVE: CASE EVENT DATE: 20180323
